FAERS Safety Report 8694634 (Version 2)
Quarter: 2012Q4

REPORT INFORMATION
  Report Type: 
  Country: GB (occurrence: GB)
  Receive Date: 20120731
  Receipt Date: 20120927
  Transmission Date: 20130627
  Serious: Yes (Other)
  Sender: FDA-Public Use
  Company Number: GB-GLAXOSMITHKLINE-B0816743A

PATIENT
  Sex: Male

DRUGS (4)
  1. ROPINIROLE [Suspect]
     Indication: RESTLESS LEGS SYNDROME
     Route: 048
     Dates: start: 2010, end: 20120706
  2. FLUOXETINE [Concomitant]
     Indication: DEPRESSION
     Route: 048
     Dates: end: 201202
  3. FEXOFENADINE [Concomitant]
     Indication: SEASONAL ALLERGY
     Route: 048
  4. MONTELUKAST [Concomitant]
     Indication: SEASONAL ALLERGY
     Route: 048

REACTIONS (3)
  - Compulsions [Recovered/Resolved]
  - Speech disorder [Recovered/Resolved]
  - Hypersexuality [Recovered/Resolved]
